FAERS Safety Report 5859171-2 (Version None)
Quarter: 2008Q3

REPORT INFORMATION
  Report Type: 
  Country: None (occurrence: None)
  Receive Date: 20080827
  Receipt Date: 20080820
  Transmission Date: 20090109
  Serious: Yes (Hospitalization)
  Sender: FDA-Public Use
  Company Number: BR-BAYER-200816390LA

PATIENT
  Age: 30 Year
  Sex: Female

DRUGS (3)
  1. BETAFERON [Suspect]
     Indication: RELAPSING-REMITTING MULTIPLE SCLEROSIS
     Route: 058
     Dates: start: 20080206
  2. DIANE 35 [Concomitant]
     Indication: POLYCYSTIC OVARIES
     Route: 048
  3. TRYPTANOL [Concomitant]
     Indication: SEDATIVE THERAPY
     Dosage: TOTAL DAILY DOSE: 25 MG  UNIT DOSE: 25 MG
     Route: 048
     Dates: start: 20080723, end: 20080723

REACTIONS (6)
  - BLOOD PRESSURE INCREASED [None]
  - BONE PAIN [None]
  - CONVULSION [None]
  - HEADACHE [None]
  - MENINGITIS VIRAL [None]
  - PYREXIA [None]
